FAERS Safety Report 9289951 (Version 1)
Quarter: 2013Q2

REPORT INFORMATION
  Report Type: Spontaneous
  Country: BE (occurrence: BE)
  Receive Date: 20130515
  Receipt Date: 20130515
  Transmission Date: 20140414
  Serious: Yes (Death)
  Sender: FDA-Public Use
  Company Number: BE-JNJFOC-20130506122

PATIENT
  Sex: Male

DRUGS (16)
  1. XARELTO [Suspect]
     Indication: CEREBROVASCULAR ACCIDENT PROPHYLAXIS
     Route: 048
     Dates: start: 201301
  2. XARELTO [Suspect]
     Indication: ATRIAL FIBRILLATION
     Route: 048
     Dates: start: 201301
  3. ZYLORIC [Concomitant]
     Route: 065
  4. FOLAVIT [Concomitant]
     Route: 065
  5. FRESUBIN [Concomitant]
     Route: 065
  6. LIPANTHYL [Concomitant]
     Route: 065
  7. MOVICOL [Concomitant]
     Route: 065
  8. PANTOPRAZOLE [Concomitant]
     Route: 065
  9. DILTIAZEM [Concomitant]
     Route: 065
  10. ZESTRIL [Concomitant]
     Route: 065
  11. SYMBICORT [Concomitant]
     Route: 065
  12. DUOVENT [Concomitant]
     Route: 065
  13. CHONDROITIN [Concomitant]
     Route: 065
  14. BURINEX [Concomitant]
     Route: 065
  15. DAFALGAN [Concomitant]
     Route: 065
  16. TRAMADOL [Concomitant]
     Route: 065

REACTIONS (3)
  - Pulmonary embolism [Fatal]
  - Haemoptysis [Unknown]
  - Haemoptysis [Unknown]
